FAERS Safety Report 22526337 (Version 1)
Quarter: 2023Q2

REPORT INFORMATION
  Report Type: Spontaneous
  Country: US (occurrence: US)
  Receive Date: 20230606
  Receipt Date: 20230606
  Transmission Date: 20230721
  Serious: Yes (Death, Other)
  Sender: FDA-Public Use
  Company Number: US-SA-2023SA171996

PATIENT
  Age: 73 Year
  Sex: Male

DRUGS (4)
  1. BELUMOSUDIL MESYLATE [Suspect]
     Active Substance: BELUMOSUDIL MESYLATE
     Dosage: 200 MG, QD
  2. CEMIPLIMAB [Suspect]
     Active Substance: CEMIPLIMAB
     Indication: Squamous cell carcinoma of skin
     Dosage: LOW DOSE
  3. PREDNISONE [Suspect]
     Active Substance: PREDNISONE
     Dosage: TAPER
  4. RUXOLITINIB [Suspect]
     Active Substance: RUXOLITINIB
     Indication: Acute myeloid leukaemia

REACTIONS (5)
  - Squamous cell carcinoma of skin [Fatal]
  - Neoplasm skin [Fatal]
  - Skin lesion [Fatal]
  - Hepatic failure [Fatal]
  - Drug-induced liver injury [Fatal]
